FAERS Safety Report 12847138 (Version 1)
Quarter: 2016Q4

REPORT INFORMATION
  Report Type: Spontaneous
  Country: ES (occurrence: ES)
  Receive Date: 20161014
  Receipt Date: 20161014
  Transmission Date: 20170207
  Serious: Yes (Other)
  Sender: FDA-Public Use
  Company Number: ES-ROCHE-1842247

PATIENT
  Sex: Male

DRUGS (4)
  1. SEPTRIN FORTE [Concomitant]
     Active Substance: SULFAMETHOXAZOLE\TRIMETHOPRIM
     Indication: RENAL VASCULITIS
     Dosage: SEPTRIN FORTE 160 MG/800 MG COMPRIMIDOS, 20 COMPRIMIDOS
     Route: 048
     Dates: start: 201512
  2. PREDNISONA [Concomitant]
     Active Substance: PREDNISONE
     Indication: RENAL VASCULITIS
     Dosage: PREDNISONA PENSA 5 MG COMPRIMIDOS EFG , 30 COMPRIMIDOS
     Route: 048
     Dates: start: 201512
  3. MABTHERA [Suspect]
     Active Substance: RITUXIMAB
     Indication: RENAL VASCULITIS
     Dosage: MABTHERA 500 MG CONCENTRADO PARA SOLUCION PARA PERFUSION, 1 VIAL DE 50
     Route: 042
     Dates: start: 201602, end: 201603
  4. MYFORTIC [Concomitant]
     Active Substance: MYCOPHENOLATE SODIUM
     Indication: RENAL VASCULITIS
     Dosage: MYFORTIC 360 MG COMPRIMIDOS GASTRORRESISTENTES , 50 COMPRIMIDOS
     Route: 048
     Dates: start: 201512

REACTIONS (2)
  - Hyperthyroidism [Recovered/Resolved with Sequelae]
  - Tremor [Recovered/Resolved]

NARRATIVE: CASE EVENT DATE: 201604
